FAERS Safety Report 5690958-5 (Version None)
Quarter: 2008Q2

REPORT INFORMATION
  Report Type: 
  Country: None (occurrence: None)
  Receive Date: 20080401
  Receipt Date: 20080225
  Transmission Date: 20081010
  Serious: Yes (Life-Threatening, Other)
  Sender: FDA-Public Use
  Company Number: US-GENENTECH-256145

PATIENT
  Sex: Female
  Weight: 89.796 kg

DRUGS (2)
  1. RITUXAN [Suspect]
     Indication: RHEUMATOID ARTHRITIS
     Dosage: 1000 MG, SINGLE
     Route: 042
     Dates: start: 20070927
  2. RITUXAN [Suspect]
     Dosage: 1000 MG, SINGLE
     Route: 042
     Dates: start: 20071012

REACTIONS (1)
  - BREAST CANCER [None]
